FAERS Safety Report 5332400-X (Version None)
Quarter: 2007Q2

REPORT INFORMATION
  Report Type: 
  Country: None (occurrence: None)
  Receive Date: 20070521
  Receipt Date: 20070521
  Transmission Date: 20071010
  Serious: No
  Sender: FDA-Public Use
  Company Number: None

PATIENT
  Sex: Female
  Weight: 95.2554 kg

DRUGS (1)
  1. ZICAM 2X ZICAM LLC [Suspect]
     Indication: NASOPHARYNGITIS
     Dosage: ONE SWAB EVERY 4 HOURS NASAL
     Route: 045
     Dates: start: 20060815, end: 20060818

REACTIONS (2)
  - DYSGEUSIA [None]
  - PAROSMIA [None]
